FAERS Safety Report 8287887-X (Version None)
Quarter: 2012Q2

REPORT INFORMATION
  Report Type: 
  Country: None (occurrence: None)
  Receive Date: 20120416
  Receipt Date: 20120413
  Transmission Date: 20120825
  Serious: Yes (Other)
  Sender: FDA-Public Use
  Company Number: US-ROCHE-1050294

PATIENT
  Sex: Female

DRUGS (2)
  1. AVASTIN [Suspect]
     Indication: CYSTOID MACULAR OEDEMA
     Dosage: DOSE: 0.05 CC
     Route: 031
     Dates: start: 20100217, end: 20110722
  2. AVASTIN [Suspect]
     Dosage: DOSE: 0.05 CC
     Route: 031

REACTIONS (3)
  - INTRAOCULAR PRESSURE INCREASED [None]
  - CHOROIDITIS [None]
  - DRUG HYPERSENSITIVITY [None]
